FAERS Safety Report 25912211 (Version 1)
Quarter: 2025Q4

REPORT INFORMATION
  Report Type: Spontaneous
  Country: JP (occurrence: JP)
  Receive Date: 20251013
  Receipt Date: 20251013
  Transmission Date: 20260118
  Serious: Yes (Hospitalization, Other)
  Sender: ROCHE
  Company Number: JP-ROCHE-10000409290

PATIENT
  Age: 46 Year
  Sex: Male

DRUGS (2)
  1. RITUXIMAB [Suspect]
     Active Substance: RITUXIMAB
     Indication: Mixed connective tissue disease
     Route: 042
  2. TACROLIMUS [Suspect]
     Active Substance: TACROLIMUS
     Indication: Mixed connective tissue disease
     Route: 065

REACTIONS (3)
  - COVID-19 [Unknown]
  - Scleroderma renal crisis [Recovering/Resolving]
  - Off label use [Unknown]
